FAERS Safety Report 9343325 (Version 2)
Quarter: 2013Q3

REPORT INFORMATION
  Report Type: Report from Study
  Country: DE (occurrence: DE)
  Receive Date: 20130612
  Receipt Date: 20130817
  Transmission Date: 20140515
  Serious: Yes (Other)
  Sender: FDA-Public Use
  Company Number: DE-ROCHE-1044266

PATIENT
  Age: 56 Year
  Sex: Female
  Weight: 65 kg

DRUGS (7)
  1. TOCILIZUMAB [Suspect]
     Indication: RHEUMATOID ARTHRITIS
     Route: 042
     Dates: start: 20111128
  2. TOCILIZUMAB [Suspect]
     Route: 042
     Dates: start: 20111229
  3. LEFLUNOMID [Concomitant]
     Route: 048
  4. PREDNISOLONE [Concomitant]
     Route: 048
  5. METHOTREXATE [Concomitant]
     Indication: RHEUMATOID ARTHRITIS
     Route: 065
     Dates: start: 20120323
  6. FOLIC ACID [Concomitant]
     Route: 065
     Dates: start: 20120324
  7. L-THYROX [Concomitant]
     Route: 065

REACTIONS (2)
  - Abscess [Recovered/Resolved]
  - Spinal fracture [Recovering/Resolving]
